FAERS Safety Report 15243448 (Version 1)
Quarter: 2018Q3

REPORT INFORMATION
  Report Type: Spontaneous
  Country: HK (occurrence: HK)
  Receive Date: 20180806
  Receipt Date: 20180806
  Transmission Date: 20181010
  Serious: Yes (Other)
  Sender: FDA-Public Use
  Company Number: HK-TEVA-2018-HK-938450

PATIENT
  Age: 58 Year
  Sex: Female

DRUGS (3)
  1. TRIAMCINOLONE [Suspect]
     Active Substance: TRIAMCINOLONE
     Indication: POST LAMINECTOMY SYNDROME
     Dosage: SHE RECEIVED 0.5ML OF A PLANNED 5ML (CONTAINING 1 ML OF 40MG/ML TRIAMCINOLONE)
     Route: 008
  2. GABAPENTIN. [Suspect]
     Active Substance: GABAPENTIN
     Indication: ANALGESIC THERAPY
     Route: 065
  3. ROPIVACAINE [Concomitant]
     Active Substance: ROPIVACAINE
     Indication: POST LAMINECTOMY SYNDROME
     Dosage: 0.5ML OF A PLANNED 5ML CONTAINING 0.375% ROPIVACAINE
     Route: 008

REACTIONS (2)
  - Myoclonus [Recovered/Resolved]
  - Spinal disorder [Recovered/Resolved]
